FAERS Safety Report 7009501-3 (Version None)
Quarter: 2010Q3

REPORT INFORMATION
  Report Type: 
  Country: None (occurrence: None)
  Receive Date: 20100903
  Receipt Date: 20090710
  Transmission Date: 20110219
  Serious: No
  Sender: FDA-Public Use
  Company Number: 2009-00575

PATIENT
  Age: 32 Year
  Sex: Male
  Weight: 81.6475 kg

DRUGS (3)
  1. ZICAM COLD REMEDY GEL SWABS [Suspect]
     Dosage: SPORADIC; 2-3 YRS AGO-6-7 MONTHS
  2. ZYRTEC [Concomitant]
  3. PREDNISONE [Concomitant]

REACTIONS (1)
  - ANOSMIA [None]
